FAERS Safety Report 15710593 (Version 1)
Quarter: 2018Q4

REPORT INFORMATION
  Report Type: Spontaneous
  Country: CN (occurrence: CN)
  Receive Date: 20181211
  Receipt Date: 20181211
  Transmission Date: 20190205
  Serious: Yes (Other)
  Sender: FDA-Public Use
  Company Number: CN-JNJFOC-20181202150

PATIENT
  Sex: Male
  Weight: 65 kg

DRUGS (1)
  1. SPORANOX [Suspect]
     Active Substance: ITRACONAZOLE
     Indication: KERATITIS
     Route: 065
     Dates: start: 201307

REACTIONS (1)
  - Empyema [Unknown]
